FAERS Safety Report 6247190-6 (Version None)
Quarter: 2009Q2

REPORT INFORMATION
  Report Type: 
  Country: None (occurrence: None)
  Receive Date: 20090626
  Receipt Date: 20090616
  Transmission Date: 20091009
  Serious: Yes (Hospitalization)
  Sender: FDA-Public Use
  Company Number: GB-PFIZER INC-2009215680

PATIENT
  Age: 50 Year

DRUGS (8)
  1. SUNITINIB MALATE [Suspect]
     Indication: BREAST CANCER
     Dosage: 37.5 MG, 1X/DAY
     Route: 048
     Dates: start: 20071027, end: 20090519
  2. *CAPECITABINE [Suspect]
     Indication: BREAST CANCER
     Dosage: 1150 MG, 2X/DAY, DAY 1-14 EVERY 3 WEEKS
     Route: 048
     Dates: start: 20081027, end: 20090519
  3. TRAMADOL [Concomitant]
     Indication: PAIN
     Dosage: 50 MG, 4X/DAY
     Dates: start: 20090308
  4. CYCLIZINE [Concomitant]
     Indication: NAUSEA
     Dosage: 50 MG, 3X/DAY
     Dates: start: 20081110
  5. METOCLOPRAMIDE [Concomitant]
     Indication: NAUSEA
     Dosage: 10 MG, 3X/DAY
     Dates: start: 20081110
  6. TEMAZEPAM [Concomitant]
     Indication: INSOMNIA
     Dosage: 10 MG, 1X/DAY
     Dates: start: 20090505
  7. ZOLEDRONIC ACID [Concomitant]
     Indication: METASTASES TO BONE
     Dosage: 4 MG, MONTHLY
     Dates: start: 20071008
  8. CODEINE [Concomitant]
     Indication: DIARRHOEA
     Dosage: 30 MG, AS NEEDED

REACTIONS (1)
  - CONVULSION [None]
